FAERS Safety Report 20430516 (Version 1)
Quarter: 2022Q1

REPORT INFORMATION
  Report Type: Report from Study
  Country: FR (occurrence: FR)
  Receive Date: 20220204
  Receipt Date: 20220204
  Transmission Date: 20220423
  Serious: Yes (Other)
  Sender: FDA-Public Use
  Company Number: FR-SERVIER-S20009879

PATIENT

DRUGS (10)
  1. ONCASPAR [Suspect]
     Active Substance: PEGASPARGASE
     Indication: Acute lymphocytic leukaemia
     Dosage: 970 IU, QD ON D8, D43
     Route: 042
     Dates: start: 20200716, end: 20200809
  2. TN UNSPECIFIED [Concomitant]
     Indication: Acute lymphocytic leukaemia
     Dosage: 12 MG, (D2)
     Route: 037
     Dates: start: 20200709
  3. TN UNSPECIFIED [Concomitant]
     Indication: Acute lymphocytic leukaemia
     Dosage: 40 MG, (D1 TO D14, D29 TO D42)
     Route: 048
     Dates: start: 20200709, end: 20200907
  4. TN UNSPECIFIED [Concomitant]
     Indication: Acute lymphocytic leukaemia
     Dosage: 800 MG, (D1, D29)
     Route: 042
     Dates: start: 20200719
  5. TN UNSPECIFIED [Concomitant]
     Indication: Acute lymphocytic leukaemia
     Dosage: 1.2 MG, (D1,D8)
     Route: 042
     Dates: start: 20200709
  6. TN UNSPECIFIED [Concomitant]
     Dosage: 1.1 MG (D1,D8)
     Route: 042
     Dates: start: 20200709
  7. TD UNSPECIFIED [Concomitant]
     Indication: Acute lymphocytic leukaemia
     Dosage: 60 MG, (D3 TO D5, D10 TO D13, D31 TO D34)
     Route: 042
     Dates: start: 20200731
  8. TD UNSPECIFIED [Concomitant]
     Dosage: UNK, (D3, D31)
     Route: 037
  9. TN UNSPECIFIED [Concomitant]
     Indication: Acute lymphocytic leukaemia
     Dosage: UNK, (D3, D31)
     Route: 037
  10. TN UNSPECIFIED [Concomitant]
     Indication: Acute lymphocytic leukaemia
     Dosage: 20 MG, (D1 TO D5)
     Route: 048

REACTIONS (2)
  - Hypersensitivity [Recovered/Resolved]
  - Hyperlipidaemia [Unknown]

NARRATIVE: CASE EVENT DATE: 20200720
